FAERS Safety Report 16359620 (Version 2)
Quarter: 2019Q4

REPORT INFORMATION
  Report Type: Report from Study
  Country: AU (occurrence: AU)
  Receive Date: 20190528
  Receipt Date: 20191111
  Transmission Date: 20200122
  Serious: No
  Sender: FDA-Public Use
  Company Number: AU-ROCHE-2326522

PATIENT
  Age: 33 Year
  Sex: Female

DRUGS (1)
  1. OCREVUS [Suspect]
     Active Substance: OCRELIZUMAB
     Indication: RELAPSING-REMITTING MULTIPLE SCLEROSIS
     Route: 041
     Dates: start: 20171114

REACTIONS (2)
  - Sinusitis [Recovered/Resolved]
  - Lower respiratory tract infection [Not Recovered/Not Resolved]

NARRATIVE: CASE EVENT DATE: 201903
